FAERS Safety Report 9516431 (Version 1)
Quarter: 2013Q1

REPORT INFORMATION
  Report Type: Spontaneous
  Country: US (occurrence: None)
  Receive Date: 20130305
  Receipt Date: 20130305
  Transmission Date: 20140127
  Serious: Yes (Other)
  Sender: FDA-Public Use
  Company Number: 163-21880-12113371

PATIENT
  Age: 76 Year
  Sex: Female
  Weight: 71.67 kg

DRUGS (19)
  1. REVLIMID (LENALIDOMIDE) (25 MILLIGRAM, CAPSULES) [Suspect]
     Indication: PLASMA CELL MYELOMA
     Dosage: 25 MG,  1 IN 1 D,  PO
     Route: 048
     Dates: start: 201202
  2. CALCIUM (CALCIUM) (UNKNOWN) [Concomitant]
  3. PROBIOTIC (BIFIDOBACTERIUM LACTIS) (UNKNOWN) [Concomitant]
  4. DEXAMETHASONE (DEXAMETHASONE) (UNKNOWN) [Concomitant]
  5. ACETAMINOPHEN/BUTABITAL/CAFFEINE (AXOTAL (OLD FORM) ) (UNKNOWN) [Concomitant]
  6. DALTEPARIN (DALTEPARIN) (UNKNOWN) [Concomitant]
  7. ACETAMINOPHEN/HYDROCODONE (VICODIN) (UNKNOWN) [Concomitant]
  8. LOPERAMIDE (LOPERAMIDE) (UNKNOWN) [Concomitant]
  9. LORAZEPAM (LORAZEPAM) (UNKNOWN) [Concomitant]
  10. PREGABALIN (PREGABALIN) (UNKNOWN) [Concomitant]
  11. MAGNESIUM (MAGNESIUM) (UNKNOWN) [Concomitant]
  12. MULTIVITAMIN (MULTIVITAMINS) (UNKNOWN) [Concomitant]
  13. OMEPRAZOLE (OMEPRAZOLE) (UNKNOWN) [Concomitant]
  14. PRAVASTATIN (PRAVASTATIN) (UNKNOWN) [Concomitant]
  15. PROCHLORPERAZINE (PROCHLORPERAZINE) (UNKNOWN) [Concomitant]
  16. VITAMIN D3 (COLECALCIFEROL) (UNKNOWN) [Concomitant]
  17. TEMAZEPAM (TEMAZEPAM) (UNKNOWN) [Concomitant]
  18. ONDANSETRON (ONDANSETRON) (UNKNOWN) [Concomitant]
  19. ASPIRIN (ACETYLSALICYLIC ACID) (UNKNOWN) (ACETYLSALICYLIC ACID) [Concomitant]

REACTIONS (1)
  - Transient ischaemic attack [None]
